FAERS Safety Report 13545171 (Version 1)
Quarter: 2017Q2

REPORT INFORMATION
  Report Type: Spontaneous
  Country: US (occurrence: US)
  Receive Date: 20170515
  Receipt Date: 20170515
  Transmission Date: 20170830
  Serious: Yes (Hospitalization)
  Sender: FDA-Public Use
  Company Number: None

PATIENT
  Age: 60 Year
  Sex: Male
  Weight: 89.99 kg

DRUGS (2)
  1. RIFAPENTINE [Suspect]
     Active Substance: RIFAPENTINE
     Indication: LATENT TUBERCULOSIS
     Route: 048
     Dates: start: 20170323, end: 20170406
  2. ISONIAZID 300MG [Suspect]
     Active Substance: ISONIAZID
     Indication: LATENT TUBERCULOSIS
     Route: 048
     Dates: start: 20170323, end: 20170406

REACTIONS (6)
  - Dysphagia [None]
  - Hypoaesthesia [None]
  - Rash [None]
  - Lip blister [None]
  - Lip swelling [None]
  - Paraesthesia [None]

NARRATIVE: CASE EVENT DATE: 20170415
